FAERS Safety Report 7372716-9 (Version None)
Quarter: 2011Q1

REPORT INFORMATION
  Report Type: 
  Country: None (occurrence: None)
  Receive Date: 20110316
  Receipt Date: 20110301
  Transmission Date: 20110831
  Serious: Yes (Hospitalization)
  Sender: FDA-Public Use
  Company Number: B0705145A

PATIENT
  Sex: 0

DRUGS (4)
  1. VANCOMYCIN [Suspect]
     Indication: FEBRILE NEUTROPENIA
     Dosage: INTRAVENOUS
     Route: 042
  2. AMPICILLIN TRIHYDRATE [Suspect]
  3. METHOTREXATE [Concomitant]
  4. CEFTAZIDIME SODIUM [Suspect]
     Indication: FEBRILE NEUTROPENIA

REACTIONS (4)
  - TACHYCARDIA [None]
  - STEVENS-JOHNSON SYNDROME [None]
  - THROMBOCYTOPENIA [None]
  - ANAEMIA [None]
